FAERS Safety Report 15242477 (Version 1)
Quarter: 2018Q3

REPORT INFORMATION
  Report Type: Spontaneous
  Country: US (occurrence: US)
  Receive Date: 20180806
  Receipt Date: 20180806
  Transmission Date: 20181010
  Serious: No
  Sender: FDA-Public Use
  Company Number: US-SHIRE-US201830309

PATIENT
  Sex: Female

DRUGS (1)
  1. XIIDRA [Suspect]
     Active Substance: LIFITEGRAST
     Indication: PRODUCT USED FOR UNKNOWN INDICATION
     Dosage: UNK
     Route: 047
     Dates: start: 20180701

REACTIONS (5)
  - Instillation site pain [Unknown]
  - Reading disorder [Unknown]
  - Vision blurred [Unknown]
  - Impaired driving ability [Unknown]
  - Instillation site reaction [Unknown]

NARRATIVE: CASE EVENT DATE: 2018
